FAERS Safety Report 5096268-1 (Version None)
Quarter: 2006Q3

REPORT INFORMATION
  Report Type: 
  Country: None (occurrence: None)
  Receive Date: 20060905
  Receipt Date: 20060824
  Transmission Date: 20061208
  Serious: Yes (Hospitalization)
  Sender: FDA-Public Use
  Company Number: NL-ROCHE-461204

PATIENT
  Age: 48 Year
  Sex: Female

DRUGS (4)
  1. CAPECITABINE [Suspect]
     Indication: COLORECTAL CANCER
     Dosage: TWO WEEKS TREATMENT FOLLOWED BY ONE WEEK REST AS PER PROTOCOL.
     Route: 048
     Dates: start: 20060113
  2. AVASTIN [Suspect]
     Indication: COLORECTAL CANCER
     Dosage: GIVEN ON DAY 1, ONCE EVERY THREE WEEKS AS PER PROTOCOL.
     Route: 042
     Dates: start: 20060113
  3. OXALIPLATIN [Suspect]
     Indication: COLORECTAL CANCER
     Dosage: GIVEN ON DAY 1 AS PER PROTOCOL.
     Route: 042
     Dates: start: 20060113
  4. ERBITUX [Suspect]
     Indication: COLORECTAL CANCER
     Dosage: 400 MG/M2 I.V. DAY 1 OF CYCLE 1, THEREAFTER WEEKLY 250 MG/M2 I.V, AS PER PROTOCOL.
     Route: 042
     Dates: start: 20060113

REACTIONS (2)
  - AORTIC THROMBOSIS [None]
  - MALAISE [None]
